FAERS Safety Report 4796189-5 (Version None)
Quarter: 2005Q3

REPORT INFORMATION
  Report Type: 
  Country: None (occurrence: None)
  Receive Date: 20050916
  Receipt Date: 20050805
  Transmission Date: 20060218
  Serious: Yes (Hospitalization)
  Sender: FDA-Public Use
  Company Number: US-JNJFOC-20050502238

PATIENT
  Age: 21 Year
  Sex: Female
  Weight: 60.782 kg

DRUGS (6)
  1. ORTHO EVRA [Suspect]
     Indication: ASTHMA
     Dosage: 1 DOSE(S), 3 IN 4 WEEK, TRANSDERMAL
     Route: 062
     Dates: start: 20030201, end: 20030501
  2. SINGULAIR [Concomitant]
  3. ADVAIR DISKUS 100/50 [Concomitant]
  4. XOPENEX [Concomitant]
  5. MAXAIR [Concomitant]
  6. PREDNISONE [Concomitant]

REACTIONS (4)
  - OFF LABEL USE [None]
  - PLEURISY [None]
  - PNEUMONIA [None]
  - PULMONARY EMBOLISM [None]
